FAERS Safety Report 17652542 (Version 1)
Quarter: 2020Q2

REPORT INFORMATION
  Report Type: Spontaneous
  Country: US (occurrence: US)
  Receive Date: 20200409
  Receipt Date: 20200409
  Transmission Date: 20200713
  Serious: No
  Sender: FDA-Public Use
  Company Number: US-VERTEX PHARMACEUTICALS-2020-000025

PATIENT
  Age: 19 Year
  Sex: Female

DRUGS (1)
  1. TRIKAFTA [Suspect]
     Active Substance: ELEXACAFTOR\IVACAFTOR\TEZACAFTOR
     Indication: CYSTIC FIBROSIS
     Dosage: ELEXACAFTOR 100MG/ TEZACAFTOR 50MG/IVACAFTOR 75MG; IVACAFTOR 150MG; BID
     Route: 048
     Dates: start: 20191205, end: 20191220

REACTIONS (7)
  - Urticaria [Unknown]
  - Abdominal pain upper [Unknown]
  - Pyrexia [Unknown]
  - Cough [Unknown]
  - Headache [Unknown]
  - Nausea [Unknown]
  - Chills [Unknown]

NARRATIVE: CASE EVENT DATE: 20191209
